FAERS Safety Report 4768440-9 (Version None)
Quarter: 2005Q3

REPORT INFORMATION
  Report Type: 
  Country: None (occurrence: None)
  Receive Date: 20050914
  Receipt Date: 20050907
  Transmission Date: 20060218
  Serious: Yes (Other)
  Sender: FDA-Public Use
  Company Number: PHRM2005FR02416

PATIENT
  Sex: Male

DRUGS (2)
  1. MYFORTIC [Suspect]
     Indication: HEART TRANSPLANT
     Dates: start: 20050601
  2. NEORAL [Suspect]
     Indication: HEART TRANSPLANT
     Route: 048
     Dates: start: 19900101

REACTIONS (2)
  - MYELITIS [None]
  - NERVOUS SYSTEM DISORDER [None]
